FAERS Safety Report 5611784-9 (Version None)
Quarter: 2008Q1

REPORT INFORMATION
  Report Type: 
  Country: None (occurrence: None)
  Receive Date: 20080204
  Receipt Date: 20080104
  Transmission Date: 20080703
  Serious: No
  Sender: FDA-Public Use
  Company Number: US-BAYER-200810488NA

PATIENT
  Age: 18 Year
  Sex: Female
  Weight: 77 kg

DRUGS (2)
  1. YASMIN [Suspect]
     Indication: CONTRACEPTION
     Route: 048
     Dates: start: 20071212, end: 20080102
  2. MOTRIN [Concomitant]

REACTIONS (1)
  - RASH GENERALISED [None]
